FAERS Safety Report 8530474-6 (Version None)
Quarter: 2012Q3

REPORT INFORMATION
  Report Type: 
  Country: None (occurrence: None)
  Receive Date: 20120723
  Receipt Date: 20120718
  Transmission Date: 20120928
  Serious: Yes (Other)
  Sender: FDA-Public Use
  Company Number: US-PFIZER INC-2012131645

PATIENT
  Sex: Female

DRUGS (1)
  1. LYRICA [Suspect]
     Dosage: UNK
     Route: 048
     Dates: end: 20120101

REACTIONS (4)
  - VOMITING [None]
  - SALIVARY HYPERSECRETION [None]
  - ABDOMINAL PAIN UPPER [None]
  - NEPHROLITHIASIS [None]
